FAERS Safety Report 8390084-0 (Version None)
Quarter: 2012Q2

REPORT INFORMATION
  Report Type: 
  Country: None (occurrence: None)
  Receive Date: 20120529
  Receipt Date: 20120521
  Transmission Date: 20120825
  Serious: Yes (Other)
  Sender: FDA-Public Use
  Company Number: JP-JNJFOC-20120518733

PATIENT
  Age: 65 Year
  Sex: Male

DRUGS (8)
  1. TRAMADOL HYDROCHLORIDE AND ACETAMINOPHEN [Suspect]
     Indication: PAIN
     Dosage: 1 DF X 1 PER 1 DAY
     Route: 048
     Dates: start: 20120409, end: 20120411
  2. TRAMADOL HYDROCHLORIDE AND ACETAMINOPHEN [Suspect]
     Dosage: 2 DF X 1 PER 1 DAY / TABLET
     Route: 048
     Dates: start: 20120412, end: 20120415
  3. TRAMADOL HYDROCHLORIDE AND ACETAMINOPHEN [Suspect]
     Dosage: 3 DF X 1 PER 1 DAY
     Route: 048
     Dates: start: 20120416, end: 20120517
  4. UNKNOWN MEDICATION [Concomitant]
     Indication: HYPERTENSION
     Route: 065
  5. PRORENAL [Concomitant]
     Route: 048
  6. TIZANIDINE HYDROCHLORIDE [Concomitant]
     Route: 048
  7. VOLTAREN-XR [Concomitant]
     Route: 048
  8. RINLAXER [Concomitant]
     Route: 048

REACTIONS (4)
  - DYSPNOEA [None]
  - LIP DISCOLOURATION [None]
  - HOT FLUSH [None]
  - OCULAR HYPERAEMIA [None]
